FAERS Safety Report 19656408 (Version 1)
Quarter: 2021Q3

REPORT INFORMATION
  Report Type: Spontaneous
  Country: US (occurrence: US)
  Receive Date: 20210804
  Receipt Date: 20210804
  Transmission Date: 20211014
  Serious: No
  Sender: FDA-Public Use
  Company Number: None

PATIENT
  Age: 57 Year
  Sex: Female
  Weight: 120.2 kg

DRUGS (11)
  1. ATORVASTATIN [Concomitant]
     Active Substance: ATORVASTATIN
  2. METROPOLOL [Concomitant]
     Active Substance: METOPROLOL
  3. EZETIMBE [Concomitant]
     Active Substance: EZETIMIBE
  4. LOSARTAN. [Concomitant]
     Active Substance: LOSARTAN
  5. ASPRIN [Concomitant]
     Active Substance: ASPIRIN
  6. BUPROPION XL [Concomitant]
     Active Substance: BUPROPION
  7. AMLODIPINE [Concomitant]
     Active Substance: AMLODIPINE BESYLATE
  8. BUSPIRONE [Concomitant]
     Active Substance: BUSPIRONE HYDROCHLORIDE
  9. LETROZOLE. [Suspect]
     Active Substance: LETROZOLE
     Indication: BREAST CANCER
     Route: 048
     Dates: start: 20210218, end: 20210804
  10. CLONAZEPAM. [Concomitant]
     Active Substance: CLONAZEPAM
  11. SERTRALINE [Concomitant]
     Active Substance: SERTRALINE HYDROCHLORIDE

REACTIONS (2)
  - Metastases to bone [None]
  - Pleural mass [None]

NARRATIVE: CASE EVENT DATE: 20210804
